FAERS Safety Report 5053380-0 (Version None)
Quarter: 2006Q3

REPORT INFORMATION
  Report Type: 
  Country: None (occurrence: None)
  Receive Date: 20060712
  Receipt Date: 20060628
  Transmission Date: 20061208
  Serious: Yes (Life-Threatening, Hospitalization, Disabling)
  Sender: FDA-Public Use
  Company Number: 2006MP000225

PATIENT
  Age: 57 Year
  Sex: Male

DRUGS (6)
  1. AGGRASTAT [Suspect]
     Indication: ANGINA UNSTABLE
     Dosage: SEE IMAGE
     Route: 042
     Dates: start: 20060211, end: 20060211
  2. AGGRASTAT [Suspect]
     Indication: ANGINA UNSTABLE
     Dosage: SEE IMAGE
     Route: 042
     Dates: start: 20060211, end: 20060213
  3. ASPIRIN [Concomitant]
  4. HEPARIN LOW MOLECULAR WEIGHT [Concomitant]
  5. INSULIN [Concomitant]
  6. PLAVIX [Concomitant]

REACTIONS (4)
  - CARDIOGENIC SHOCK [None]
  - CEREBROVASCULAR ACCIDENT [None]
  - CORONARY ARTERY STENOSIS [None]
  - MYOCARDIAL INFARCTION [None]
